FAERS Safety Report 14632094 (Version 1)
Quarter: 2018Q1

REPORT INFORMATION
  Report Type: Spontaneous
  Country: JP (occurrence: JP)
  Receive Date: 20180313
  Receipt Date: 20180313
  Transmission Date: 20180509
  Serious: Yes (Life-Threatening, Other)
  Sender: FDA-Public Use
  Company Number: JP-009507513-1801JPN001405J

PATIENT
  Age: 61 Year
  Sex: Male
  Weight: 53 kg

DRUGS (3)
  1. DIPRIVAN KIT [Suspect]
     Active Substance: PROPOFOL
     Indication: GENERAL ANAESTHESIA
     Dosage: UNK
     Route: 042
     Dates: start: 20171205, end: 20171205
  2. ULTIVA [Suspect]
     Active Substance: REMIFENTANIL HYDROCHLORIDE
     Indication: ANALGESIC THERAPY
     Dosage: UNK
     Route: 042
     Dates: start: 20171205, end: 20171205
  3. ESLAX INTRAVENOUS 50MG/5.0ML [Suspect]
     Active Substance: ROCURONIUM BROMIDE
     Indication: NEUROMUSCULAR BLOCKING THERAPY
     Dosage: 0.6 MG/KG, UNK
     Route: 042
     Dates: start: 20171205, end: 20171205

REACTIONS (5)
  - Blood pressure decreased [Recovered/Resolved]
  - Anaphylactic shock [Recovered/Resolved]
  - Respiratory tract oedema [Recovered/Resolved]
  - Generalised erythema [Recovered/Resolved]
  - Flushing [Recovered/Resolved]

NARRATIVE: CASE EVENT DATE: 20171205
